FAERS Safety Report 5751299-0 (Version None)
Quarter: 2008Q2

REPORT INFORMATION
  Report Type: 
  Country: None (occurrence: None)
  Receive Date: 20080528
  Receipt Date: 20080519
  Transmission Date: 20081010
  Serious: Yes (Other)
  Sender: FDA-Public Use
  Company Number: US-AMGEN-QUU280874

PATIENT
  Sex: Female

DRUGS (1)
  1. ENBREL [Suspect]
     Indication: RHEUMATOID ARTHRITIS
     Route: 058
     Dates: start: 20080410, end: 20080516

REACTIONS (9)
  - ALOPECIA [None]
  - ARTHRALGIA [None]
  - DEPRESSION [None]
  - DYSARTHRIA [None]
  - ELEVATED MOOD [None]
  - FEELING DRUNK [None]
  - MOOD SWINGS [None]
  - PAIN [None]
  - SUICIDAL IDEATION [None]
